FAERS Safety Report 6007694-8 (Version None)
Quarter: 2008Q4

REPORT INFORMATION
  Report Type: 
  Country: None (occurrence: None)
  Receive Date: 20081217
  Receipt Date: 20080407
  Transmission Date: 20090506
  Serious: No
  Sender: FDA-Public Use
  Company Number: US-ASTRAZENECA-2008UW06984

PATIENT
  Age: 71 Year
  Sex: Male
  Weight: 86.2 kg

DRUGS (3)
  1. CRESTOR [Suspect]
     Route: 048
     Dates: start: 20020101
  2. ASPIRIN [Concomitant]
  3. TRICOR [Concomitant]

REACTIONS (1)
  - PARAESTHESIA [None]
